FAERS Safety Report 8906039 (Version 1)
Quarter: 2012Q4

REPORT INFORMATION
  Report Type: Report from Study
  Country: DE (occurrence: DE)
  Receive Date: 20121109
  Receipt Date: 20121109
  Transmission Date: 20130627
  Serious: Yes (Hospitalization)
  Sender: FDA-Public Use
  Company Number: DE-GLAXOSMITHKLINE-B0843259A

PATIENT
  Sex: Female
  Weight: 56 kg

DRUGS (6)
  1. LAPATINIB [Suspect]
     Indication: BREAST NEOPLASM
     Dosage: 750MG Per day
     Route: 048
     Dates: start: 20121017
  2. PACLITAXEL [Suspect]
     Indication: BREAST NEOPLASM
     Dosage: 129MG Weekly
     Route: 042
     Dates: start: 20121017
  3. MYOCET [Suspect]
     Indication: BREAST NEOPLASM
     Dosage: 32MG Weekly
     Route: 042
     Dates: start: 20121017
  4. CARBOPLATIN [Suspect]
     Indication: BREAST NEOPLASM
     Dosage: 179MG Weekly
     Route: 042
     Dates: start: 20121017
  5. TRASTUZUMAB [Suspect]
     Indication: BREAST NEOPLASM
     Dosage: 448MG Cyclic
     Route: 042
     Dates: start: 20121017
  6. FILGRASTIM [Concomitant]
     Dates: start: 20121102, end: 20121104

REACTIONS (1)
  - Dehydration [Recovered/Resolved]
